FAERS Safety Report 10574047 (Version 2)
Quarter: 2014Q4

REPORT INFORMATION
  Report Type: Report from Study
  Country: IE (occurrence: IE)
  Receive Date: 20141110
  Receipt Date: 20141110
  Transmission Date: 20150529
  Serious: Yes (Other)
  Sender: FDA-Public Use
  Company Number: IE-GLAXOSMITHKLINE-B1035695A

PATIENT
  Age: 41 Year
  Sex: Female
  Weight: 73.8 kg

DRUGS (4)
  1. TYKERB [Suspect]
     Active Substance: LAPATINIB DITOSYLATE
     Indication: BREAST NEOPLASM
     Dosage: 1000 MG, UNK
     Route: 048
     Dates: start: 20120413, end: 20120822
  2. TRASTUZUMAB [Suspect]
     Active Substance: TRASTUZUMAB
     Dosage: 462 MG, UNK
     Route: 042
     Dates: start: 20120413, end: 20130315
  3. DOCETAXEL. [Suspect]
     Active Substance: DOCETAXEL
     Indication: BREAST NEOPLASM
     Dosage: 128 MG, UNK
     Route: 042
     Dates: start: 20120413, end: 20120527
  4. CARBOPLATIN. [Suspect]
     Active Substance: CARBOPLATIN
     Indication: BREAST NEOPLASM
     Dosage: 770 MG, UNK
     Route: 042
     Dates: start: 20120413, end: 20120527

REACTIONS (1)
  - Ejection fraction decreased [Recovered/Resolved]

NARRATIVE: CASE EVENT DATE: 20140415
